FAERS Safety Report 23773968 (Version 2)
Quarter: 2024Q4

REPORT INFORMATION
  Report Type: Spontaneous
  Country: JP (occurrence: JP)
  Receive Date: 20240423
  Receipt Date: 20241216
  Transmission Date: 20250114
  Serious: Yes (Death, Hospitalization, Other)
  Sender: ROCHE
  Company Number: JP-CHUGAI-2024012680

PATIENT
  Age: 82 Year
  Weight: 60 kg

DRUGS (6)
  1. ACTEMRA [Suspect]
     Active Substance: TOCILIZUMAB
     Indication: Rheumatoid arthritis
     Dosage: 162 MILLIGRAM, ONCE/WEEK
     Route: 058
  2. ACTEMRA [Suspect]
     Active Substance: TOCILIZUMAB
     Dosage: 162 MILLIGRAM, ONCE/WEEK
     Route: 058
  3. ACTEMRA [Suspect]
     Active Substance: TOCILIZUMAB
     Route: 042
     Dates: start: 20190626, end: 2020
  4. PREDNISOLONE [Concomitant]
     Active Substance: PREDNISOLONE
  5. SULFAMETHOXAZOLE\TRIMETHOPRIM [Concomitant]
     Active Substance: SULFAMETHOXAZOLE\TRIMETHOPRIM
  6. IGURATIMOD [Concomitant]
     Active Substance: IGURATIMOD

REACTIONS (3)
  - COVID-19 [Recovered/Resolved]
  - Interstitial lung disease [Fatal]
  - Interleukin level increased [Unknown]

NARRATIVE: CASE EVENT DATE: 20240101
